FAERS Safety Report 8517226-8 (Version None)
Quarter: 2012Q3

REPORT INFORMATION
  Report Type: 
  Country: None (occurrence: None)
  Receive Date: 20120718
  Receipt Date: 20120716
  Transmission Date: 20120928
  Serious: Yes (Other)
  Sender: FDA-Public Use
  Company Number: NO-PFIZER INC-2012170342

PATIENT
  Age: 64 Year
  Sex: Male
  Weight: 85 kg

DRUGS (3)
  1. QUENTASA (CAPSAICIN) PATCH [Suspect]
     Indication: POST HERPETIC NEURALGIA
     Route: 061
     Dates: start: 20120504, end: 20120504
  2. MORPHINE SULFATE [Suspect]
     Dosage: DF [ONLY OCCASSIONALLY]
     Dates: end: 20120504
  3. MORPHINE SULFATE [Suspect]
     Dosage: 40 MG, 1X/DAY
     Dates: start: 20120101

REACTIONS (3)
  - POST HERPETIC NEURALGIA [None]
  - WITHDRAWAL SYNDROME [None]
  - CONDITION AGGRAVATED [None]
